FAERS Safety Report 4894874-8 (Version None)
Quarter: 2006Q1

REPORT INFORMATION
  Report Type: 
  Country: None (occurrence: None)
  Receive Date: 20060130
  Receipt Date: 20060119
  Transmission Date: 20060701
  Serious: Yes (Hospitalization)
  Sender: FDA-Public Use
  Company Number: PHBS2006IT01318

PATIENT
  Age: 53 Year
  Sex: Male

DRUGS (2)
  1. ARCOXIA [Suspect]
     Indication: RHEUMATOID ARTHRITIS
     Dosage: 90 MG, PRN
     Route: 048
     Dates: start: 20040701, end: 20060113
  2. SANDIMMUNE [Suspect]
     Indication: PSORIATIC ARTHROPATHY
     Dosage: 50 MG, TID
     Route: 048
     Dates: start: 20040101, end: 20060113

REACTIONS (2)
  - DEEP VEIN THROMBOSIS [None]
  - FIBRIN D DIMER INCREASED [None]
